FAERS Safety Report 6603881-6 (Version None)
Quarter: 2010Q1

REPORT INFORMATION
  Report Type: 
  Country: None (occurrence: None)
  Receive Date: 20100226
  Receipt Date: 20090310
  Transmission Date: 20100710
  Serious: No
  Sender: FDA-Public Use
  Company Number: A0771537A

PATIENT
  Age: 15 Year
  Sex: Female

DRUGS (2)
  1. LAMICTAL CD [Suspect]
     Indication: DEPRESSION
     Dosage: 25MG PER DAY
     Route: 048
     Dates: start: 20090224, end: 20090224
  2. ZOLOFT [Concomitant]

REACTIONS (7)
  - HYPERSENSITIVITY [None]
  - LYMPHADENOPATHY [None]
  - PHARYNGEAL OEDEMA [None]
  - PRURITUS [None]
  - PYREXIA [None]
  - RASH [None]
  - SWOLLEN TONGUE [None]
